FAERS Safety Report 23114121 (Version 1)
Quarter: 2023Q4

REPORT INFORMATION
  Report Type: Spontaneous
  Country: US (occurrence: None)
  Receive Date: 20231027
  Receipt Date: 20231027
  Transmission Date: 20240109
  Serious: Yes (Hospitalization)
  Sender: FDA-Public Use
  Company Number: US-ROCHE-3444836

PATIENT
  Age: 62 Year
  Sex: Male
  Weight: 112.59 kg

DRUGS (4)
  1. GAZYVA [Suspect]
     Active Substance: OBINUTUZUMAB
     Indication: Chronic lymphocytic leukaemia
     Dosage: PER GAZYVA PACKAGE INSERT DAY 1 100MG, THEN 900 DAY 2, THEN WEEKLY PER?GUIDELINES
     Route: 042
     Dates: start: 20231019
  2. BENADRYL [Concomitant]
     Active Substance: DIPHENHYDRAMINE HYDROCHLORIDE
     Indication: Premedication
     Dosage: PER GAZYVA PACKAGE INSERT
     Route: 042
     Dates: start: 20231019
  3. DEXAMETHASONE [Concomitant]
     Active Substance: DEXAMETHASONE
     Indication: Premedication
     Dosage: PER GAZYVA PACKAGE INSERT
     Route: 042
     Dates: start: 20231019
  4. TYLENOL [Concomitant]
     Active Substance: ACETAMINOPHEN
     Indication: Premedication
     Dosage: PER GAZYVA PACKAGE INSERT
     Route: 048
     Dates: start: 20231019

REACTIONS (5)
  - Tachycardia [Recovered/Resolved]
  - Dyspnoea [Recovered/Resolved]
  - Hypoxia [Recovered/Resolved]
  - Chills [Recovered/Resolved]
  - Off label use [Unknown]

NARRATIVE: CASE EVENT DATE: 20231019
